FAERS Safety Report 4618088-1 (Version None)
Quarter: 2005Q1

REPORT INFORMATION
  Report Type: 
  Country: None (occurrence: None)
  Receive Date: 20050322
  Receipt Date: 20050309
  Transmission Date: 20050727
  Serious: Yes (Other)
  Sender: FDA-Public Use
  Company Number: 2005043284

PATIENT
  Age: 83 Year
  Sex: Male
  Weight: 83.4619 kg

DRUGS (10)
  1. DETROL LA [Suspect]
     Indication: ILL-DEFINED DISORDER
     Dosage: 2 MG (2 MG, DAILY INTERVAL:  EVERY DAY), ORAL
     Route: 048
  2. DETROL LA [Suspect]
     Indication: ILL-DEFINED DISORDER
     Dosage: 4 MG (4 MG, DAILY), ORAL
     Route: 048
     Dates: start: 20040301
  3. ALL OTHER THERAPEUTIC PRODUCTS (ALL OTHER THERAPEUTIC PRODUCTS) [Suspect]
     Indication: PNEUMONIA
     Dosage: INHALATION
     Route: 055
  4. SIMVASTATIN [Concomitant]
  5. NICOTINIC ACID [Concomitant]
  6. CILOSTAZOL [Concomitant]
  7. TAMSULOSIN HYDROCHLORIDE (TAMSULOSIN HYDROCHLORIDE) [Concomitant]
  8. VITAMINS (VITAMINS) [Concomitant]
  9. SERENOA REPENS (SERENOA REPENS) [Concomitant]
  10. GARLIC (GARLIC) [Concomitant]

REACTIONS (8)
  - ABDOMINAL DISTENSION [None]
  - DRUG INEFFECTIVE [None]
  - HEART RATE INCREASED [None]
  - MEDICATION ERROR [None]
  - PNEUMONIA [None]
  - POLLAKIURIA [None]
  - URINARY INCONTINENCE [None]
  - WEIGHT DECREASED [None]
